FAERS Safety Report 5127348-X (Version None)
Quarter: 2006Q4

REPORT INFORMATION
  Report Type: 
  Country: None (occurrence: None)
  Receive Date: 20061010
  Receipt Date: 20060926
  Transmission Date: 20070319
  Serious: Yes (Other)
  Sender: FDA-Public Use
  Company Number: 2006118331

PATIENT
  Sex: Female

DRUGS (1)
  1. LYRICA [Suspect]
     Indication: NEURALGIA
     Dosage: 75 MG (75 MG, 1 IN 1 D)

REACTIONS (4)
  - BONE FISSURE [None]
  - DIZZINESS [None]
  - FALL [None]
  - INCORRECT DOSE ADMINISTERED [None]
